FAERS Safety Report 10351011 (Version 1)
Quarter: 2014Q3

REPORT INFORMATION
  Report Type: Spontaneous
  Country: US (occurrence: US)
  Receive Date: 20140730
  Receipt Date: 20140730
  Transmission Date: 20150326
  Serious: Yes (Other)
  Sender: FDA-Public Use
  Company Number: US-PFIZER INC-2014210963

PATIENT
  Sex: Female

DRUGS (1)
  1. PRISTIQ EXTENDED RELEASE [Suspect]
     Active Substance: DESVENLAFAXINE SUCCINATE
     Dosage: 50 MG, UNK

REACTIONS (6)
  - Oedema peripheral [Unknown]
  - Blood pressure increased [Unknown]
  - Hypotension [Unknown]
  - Blood sodium decreased [Unknown]
  - Blood cholesterol increased [Unknown]
  - Paraesthesia [Unknown]
